FAERS Safety Report 13613375 (Version 4)
Quarter: 2017Q4

REPORT INFORMATION
  Report Type: Report from Study
  Country: US (occurrence: US)
  Receive Date: 20170605
  Receipt Date: 20171012
  Transmission Date: 20180320
  Serious: Yes (Other)
  Sender: FDA-Public Use
  Company Number: US-ACTELION-A-US2016-146755

PATIENT
  Age: 73 Year
  Sex: Female
  Weight: 68.27 kg

DRUGS (5)
  1. VENTAVIS [Suspect]
     Active Substance: ILOPROST
     Indication: PULMONARY HYPERTENSION
     Dosage: 5 MCG, 6-9 TIMES, QD
     Route: 055
     Dates: start: 20080131
  2. TRACLEER [Suspect]
     Active Substance: BOSENTAN
     Indication: PULMONARY HYPERTENSION
     Dosage: 125 MG, BID
     Route: 048
     Dates: start: 20100216
  3. VENTAVIS [Suspect]
     Active Substance: ILOPROST
     Dosage: 5 MCG, 4-9 TIMES, QD
     Route: 055
  4. REVATIO [Concomitant]
     Active Substance: SILDENAFIL CITRATE
  5. DILTIAZEM. [Concomitant]
     Active Substance: DILTIAZEM

REACTIONS (12)
  - Photopsia [Unknown]
  - Headache [Unknown]
  - Amnesia [Unknown]
  - Bronchitis [Unknown]
  - Dizziness [Unknown]
  - Transient ischaemic attack [Unknown]
  - Foot fracture [Unknown]
  - Device issue [Unknown]
  - Diarrhoea [Unknown]
  - Presyncope [Unknown]
  - Pain in extremity [Unknown]
  - Oxygen saturation decreased [Unknown]
